FAERS Safety Report 7771668-7 (Version None)
Quarter: 2011Q3

REPORT INFORMATION
  Report Type: 
  Country: None (occurrence: None)
  Receive Date: 20110922
  Receipt Date: 20110426
  Transmission Date: 20111222
  Serious: No
  Sender: FDA-Public Use
  Company Number: US-ASTRAZENECA-2011SE24322

PATIENT
  Age: 64 Year
  Sex: Female
  Weight: 72.6 kg

DRUGS (3)
  1. SEROQUEL [Suspect]
     Indication: BIPOLAR DISORDER
     Route: 048
  2. SEROQUEL [Suspect]
     Route: 048
  3. CLONAZEPAM [Concomitant]
     Indication: ANXIETY
     Route: 048

REACTIONS (5)
  - APHASIA [None]
  - MEMORY IMPAIRMENT [None]
  - ADVERSE EVENT [None]
  - COGNITIVE DISORDER [None]
  - SLOW RESPONSE TO STIMULI [None]
